FAERS Safety Report 7586880-X (Version None)
Quarter: 2011Q3

REPORT INFORMATION
  Report Type: 
  Country: None (occurrence: None)
  Receive Date: 20110701
  Receipt Date: 20110623
  Transmission Date: 20111222
  Serious: Yes (Hospitalization)
  Sender: FDA-Public Use
  Company Number: US-SANOFI-AVENTIS-2011SA040417

PATIENT
  Age: 70 Year
  Sex: Female

DRUGS (5)
  1. LEUCOVORIN CALCIUM [Suspect]
     Indication: COLORECTAL CANCER
     Route: 042
     Dates: start: 20100419, end: 20100419
  2. BEVACIZUMAB [Suspect]
     Indication: COLORECTAL CANCER
     Dosage: DURATION: 30 - 90 MINFREQUENCY: EVERY TWO WEEKS X 12 ADDITIONAL CYCLES
     Route: 042
     Dates: start: 20100419, end: 20100419
  3. OXALIPLATIN [Suspect]
     Indication: COLORECTAL CANCER
     Route: 042
     Dates: start: 20100419, end: 20100419
  4. FLUOROURACIL [Suspect]
     Indication: COLORECTAL CANCER
     Route: 040
     Dates: start: 20100419
  5. FLUOROURACIL [Suspect]
     Dosage: DOSE:2.4 GRAM(S)/SQUARE METER
     Route: 041
     Dates: start: 20100419

REACTIONS (4)
  - HAEMOGLOBIN DECREASED [None]
  - INTERNATIONAL NORMALISED RATIO INCREASED [None]
  - LARGE INTESTINAL ULCER [None]
  - LARGE INTESTINAL HAEMORRHAGE [None]
